APPROVED DRUG PRODUCT: BEXTRA
Active Ingredient: VALDECOXIB
Strength: 20MG
Dosage Form/Route: TABLET;ORAL
Application: N021341 | Product #003
Applicant: GD SEARLE LLC
Approved: Nov 16, 2001 | RLD: No | RS: No | Type: DISCN